FAERS Safety Report 13252233 (Version 2)
Quarter: 2017Q2

REPORT INFORMATION
  Report Type: Spontaneous
  Country: US (occurrence: US)
  Receive Date: 20170220
  Receipt Date: 20170419
  Transmission Date: 20170830
  Serious: Yes (Other)
  Sender: FDA-Public Use
  Company Number: US-009507513-1702USA008474

PATIENT
  Sex: Female

DRUGS (1)
  1. JANUVIA [Suspect]
     Active Substance: SITAGLIPTIN PHOSPHATE
     Indication: TYPE 2 DIABETES MELLITUS
     Dosage: 1 DF, QPM
     Route: 048
     Dates: start: 2013, end: 201312

REACTIONS (3)
  - Skin discolouration [Not Recovered/Not Resolved]
  - Skin reaction [Unknown]
  - Chronic kidney disease [Not Recovered/Not Resolved]
